FAERS Safety Report 10018499 (Version 1)
Quarter: 2014Q1

REPORT INFORMATION
  Report Type: Spontaneous
  Country: US (occurrence: None)
  Receive Date: 20140314
  Receipt Date: 20140314
  Transmission Date: 20141002
  Serious: No
  Sender: FDA-Public Use
  Company Number: None

PATIENT
  Age: 54 Year
  Sex: Female

DRUGS (1)
  1. CEFADROXIL [Suspect]
     Indication: INFECTED DERMAL CYST
     Dosage: 1 DOSE TWICE DAILY TAKEN BY MOUTH
     Route: 048

REACTIONS (3)
  - Chest discomfort [None]
  - Pain in extremity [None]
  - Arthralgia [None]
